FAERS Safety Report 7707462-2 (Version None)
Quarter: 2011Q3

REPORT INFORMATION
  Report Type: 
  Country: None (occurrence: None)
  Receive Date: 20110824
  Receipt Date: 20110815
  Transmission Date: 20111222
  Serious: Yes (Death)
  Sender: FDA-Public Use
  Company Number: US-NAPPMUNDI-USA-2011-0072872

PATIENT
  Age: 43 Year
  Sex: Female
  Weight: 73.016 kg

DRUGS (2)
  1. CLINDAMYCIN [Concomitant]
     Indication: PERITONSILLAR ABSCESS
     Dosage: UNK
     Dates: start: 20100121
  2. OXYCODONE HCL [Suspect]
     Indication: OROPHARYNGEAL PAIN
     Dosage: 30 MG, Q4H
     Dates: start: 20100121

REACTIONS (2)
  - MYOCARDIAL ISCHAEMIA [None]
  - ACCIDENTAL OVERDOSE [None]
